FAERS Safety Report 9829335 (Version 3)
Quarter: 2014Q4

REPORT INFORMATION
  Report Type: Report from Study
  Country: CA (occurrence: CA)
  Receive Date: 20140120
  Receipt Date: 20141224
  Transmission Date: 20150529
  Serious: Yes (Other)
  Sender: FDA-Public Use
  Company Number: CA-ROCHE-1202836

PATIENT
  Age: 56 Year
  Sex: Female
  Weight: 69.9 kg

DRUGS (13)
  1. PREGABALIN. [Concomitant]
     Active Substance: PREGABALIN
  2. PREDNISONE. [Concomitant]
     Active Substance: PREDNISONE
  3. ASPIRIN. [Concomitant]
     Active Substance: ASPIRIN
     Route: 065
  4. JANUVIA [Concomitant]
     Active Substance: SITAGLIPTIN PHOSPHATE
  5. ACETAMINOPHEN. [Concomitant]
     Active Substance: ACETAMINOPHEN
     Indication: PREMEDICATION
     Route: 048
     Dates: start: 20120607
  6. INSULIN [Concomitant]
     Active Substance: INSULIN NOS
  7. MICARDIS PLUS [Concomitant]
     Active Substance: HYDROCHLOROTHIAZIDE\TELMISARTAN
  8. DIPHENHYDRAMINE HCL [Concomitant]
     Active Substance: DIPHENHYDRAMINE HYDROCHLORIDE
     Indication: PREMEDICATION
     Route: 048
     Dates: start: 20120607
  9. METHYLPREDNISOLONE. [Concomitant]
     Active Substance: METHYLPREDNISOLONE
     Indication: PREMEDICATION
     Route: 042
     Dates: start: 20120607
  10. RALOXIFENE [Concomitant]
     Active Substance: RALOXIFENE
  11. TRAMCET [Concomitant]
     Active Substance: ACETAMINOPHEN\TRAMADOL
  12. RITUXAN [Suspect]
     Active Substance: RITUXIMAB
     Indication: POLYMYOSITIS
     Dosage: DATE OF LAST DOSE PRIOR TO SAE 13/FEB/2014
     Route: 042
     Dates: start: 20120607
  13. ACTONEL [Concomitant]
     Active Substance: RISEDRONATE SODIUM
     Route: 065

REACTIONS (7)
  - Myositis [Unknown]
  - Fibromyalgia [Unknown]
  - Blood glucose increased [Unknown]
  - Throat irritation [Recovered/Resolved]
  - Polymyositis [Not Recovered/Not Resolved]
  - Cough [Recovering/Resolving]
  - Off label use [Unknown]

NARRATIVE: CASE EVENT DATE: 2013
